FAERS Safety Report 16937541 (Version 1)
Quarter: 2019Q4

REPORT INFORMATION
  Report Type: Spontaneous
  Country: CA (occurrence: CA)
  Receive Date: 20191018
  Receipt Date: 20191018
  Transmission Date: 20200122
  Serious: Yes (Other)
  Sender: FDA-Public Use
  Company Number: CA-VALIDUS PHARMACEUTICALS LLC-CA-2019VAL000619

PATIENT

DRUGS (6)
  1. TOBRAMYCIN. [Suspect]
     Active Substance: TOBRAMYCIN
     Indication: SALMONELLOSIS
  2. CEFOTAXIME SODIUM [Suspect]
     Active Substance: CEFOTAXIME SODIUM
     Indication: SALMONELLOSIS
  3. TOBRAMYCIN. [Suspect]
     Active Substance: TOBRAMYCIN
     Indication: ORCHITIS
     Dosage: UNK
     Route: 042
  4. CEFOTAXIME SODIUM [Suspect]
     Active Substance: CEFOTAXIME SODIUM
     Indication: ORCHITIS
     Dosage: UNK
     Route: 042
  5. AMPICILLIN [Suspect]
     Active Substance: AMPICILLIN
     Indication: ORCHITIS
     Dosage: UNK
     Route: 042
  6. AMPICILLIN [Suspect]
     Active Substance: AMPICILLIN
     Indication: SALMONELLOSIS

REACTIONS (6)
  - Drug ineffective [Recovered/Resolved]
  - Salmonellosis [Recovered/Resolved]
  - Condition aggravated [Recovered/Resolved]
  - Orchitis [Recovered/Resolved]
  - Erythema [Recovered/Resolved]
  - Scrotal swelling [Recovered/Resolved]
